FAERS Safety Report 9391924 (Version 1)
Quarter: 2013Q3

REPORT INFORMATION
  Report Type: Spontaneous
  Country: IT (occurrence: None)
  Receive Date: 20130705
  Receipt Date: 20130705
  Transmission Date: 20140515
  Serious: Yes (Hospitalization, Other)
  Sender: FDA-Public Use
  Company Number: IT-023056

PATIENT
  Age: 68 Year
  Sex: Female
  Weight: 74 kg

DRUGS (5)
  1. CHLORAMBUCIL (CHLORAMBUCIL) (UNKNOWN) [Suspect]
     Indication: CHRONIC LYMPHOCYTIC LEUKAEMIA
     Dosage: 40 MILLIGRAM (20 MILLIGRAM, 1 IN 1D DAYS), UNKNOWN
     Dates: start: 20101123, end: 20110322
  2. HYDROCHLOROTHIAZIDE (HYROCHLOROTHIAZIDE) [Concomitant]
  3. GILBOMET (GLIBENCLAMIDE) [Concomitant]
  4. ASCRIPTIN (MAGNESIUM HYDROXIDE) [Concomitant]
  5. POTASSIUM ACETATE [Suspect]

REACTIONS (6)
  - Pyrexia [None]
  - Gait disturbance [None]
  - Arthritis [None]
  - Neutropenia [None]
  - Lymphadenopathy [None]
  - Disease progression [None]
